FAERS Safety Report 7770271-2 (Version None)
Quarter: 2011Q3

REPORT INFORMATION
  Report Type: 
  Country: None (occurrence: None)
  Receive Date: 20110922
  Receipt Date: 20100802
  Transmission Date: 20111222
  Serious: No
  Sender: FDA-Public Use
  Company Number: US-ASTRAZENECA-2007UW07765

PATIENT
  Age: 35 Year
  Sex: Female
  Weight: 147.4 kg

DRUGS (8)
  1. WELLBUTRIN [Concomitant]
     Indication: DEPRESSION
     Dosage: 150 MG - 300 MG
     Dates: start: 20020321
  2. SEROQUEL [Suspect]
     Dosage: 50-900 MG
     Route: 048
     Dates: start: 20020225, end: 20060417
  3. PROZAC [Concomitant]
     Dates: start: 20020320
  4. SEROQUEL [Suspect]
     Indication: SLEEP DISORDER
     Dosage: 50 MG - 900 MG
     Route: 048
     Dates: start: 20020226, end: 20050606
  5. RISPERDAL [Concomitant]
     Dosage: 0.5 TO 3 MG
     Dates: start: 20001101, end: 20020225
  6. SEROQUEL [Suspect]
     Indication: NIGHTMARE
     Dosage: 50 MG - 900 MG
     Route: 048
     Dates: start: 20020226, end: 20050606
  7. SEROQUEL [Suspect]
     Dosage: 50-900 MG
     Route: 048
     Dates: start: 20020225, end: 20060417
  8. ABILIFY [Concomitant]

REACTIONS (4)
  - DIABETES MELLITUS INADEQUATE CONTROL [None]
  - TYPE 2 DIABETES MELLITUS [None]
  - GESTATIONAL DIABETES [None]
  - GLYCOSURIA [None]
